FAERS Safety Report 21069220 (Version 1)
Quarter: 2022Q3

REPORT INFORMATION
  Report Type: Spontaneous
  Country: US (occurrence: None)
  Receive Date: 20220711
  Receipt Date: 20220711
  Transmission Date: 20221026
  Serious: Yes (Life-Threatening, Hospitalization, Disabling, Other)
  Sender: FDA-Public Use
  Company Number: None

PATIENT
  Age: 43 Year
  Sex: Female
  Weight: 99.45 kg

DRUGS (3)
  1. SPRAVATO [Suspect]
     Active Substance: ESKETAMINE
     Indication: Depression
     Dosage: OTHER QUANTITY : 4 SPRAY(S);?OTHER FREQUENCY : EVERY TWO WEEKS;?
     Route: 055
     Dates: start: 20211101, end: 20220311
  2. LEXAPRO [Concomitant]
     Active Substance: ESCITALOPRAM OXALATE
  3. VYVANSE [Concomitant]
     Active Substance: LISDEXAMFETAMINE DIMESYLATE

REACTIONS (6)
  - Suicidal ideation [None]
  - Depression [None]
  - Loss of employment [None]
  - Back pain [None]
  - Asthenia [None]
  - Impaired work ability [None]

NARRATIVE: CASE EVENT DATE: 20220425
